FAERS Safety Report 5599971-X (Version None)
Quarter: 2007Q4

REPORT INFORMATION
  Report Type: 
  Country: None (occurrence: None)
  Receive Date: 20071226
  Receipt Date: 20070626
  Transmission Date: 20080405
  Serious: Yes (Other)
  Sender: FDA-Public Use
  Company Number: 231831

PATIENT
  Age: 63 Year
  Sex: Female
  Weight: 90 kg

DRUGS (5)
  1. RAPTIVA [Suspect]
     Indication: PSORIASIS
     Dosage: 90 MG, 1/WEEK, SUBCUTANEOUS
     Route: 058
     Dates: start: 20060526, end: 20060719
  2. RAPTIVA [Suspect]
     Indication: PSORIASIS
     Dosage: 90 MG, 1/WEEK, SUBCUTANEOUS
     Route: 058
     Dates: start: 20050906
  3. RAPTIVA [Suspect]
     Indication: PSORIASIS
     Dosage: 90 MG, 1/WEEK, SUBCUTANEOUS
     Route: 058
     Dates: start: 20070418
  4. VALTREX [Concomitant]
  5. VALTREX [Concomitant]

REACTIONS (3)
  - HERPES SIMPLEX [None]
  - PAIN [None]
  - PSORIASIS [None]
